FAERS Safety Report 6022680-X (Version None)
Quarter: 2008Q4

REPORT INFORMATION
  Report Type: 
  Country: None (occurrence: None)
  Receive Date: 20081223
  Receipt Date: 20081219
  Transmission Date: 20090506
  Serious: Yes (Death)
  Sender: FDA-Public Use
  Company Number: 2008JP005855

PATIENT
  Age: 46 Year
  Sex: Female

DRUGS (5)
  1. FUNGUARD(MICAFUNGIN) INJECTION [Suspect]
     Dosage: 150 MG,  /D, IV DRIP
     Route: 042
     Dates: start: 20070706, end: 20070712
  2. PENTCILLIN (PIPERACILLIN SODIUM) INJECTION [Concomitant]
  3. GENTACIN (GENTAMICIN SULFATE) INJECTION [Concomitant]
  4. NEUPOGEN [Concomitant]
  5. MEROPEN (MEROPENEM TRIHYDRATE) INJECTION [Concomitant]

REACTIONS (1)
  - ENCEPHALITIS VIRAL [None]
